FAERS Safety Report 17732779 (Version 1)
Quarter: 2020Q2

REPORT INFORMATION
  Report Type: Report from Study
  Country: US (occurrence: US)
  Receive Date: 20200501
  Receipt Date: 20200501
  Transmission Date: 20200714
  Serious: Yes (Hospitalization, Other)
  Sender: FDA-Public Use
  Company Number: NVSC2020US115755

PATIENT
  Age: 73 Year
  Sex: Male

DRUGS (1)
  1. ENTRESTO [Suspect]
     Active Substance: SACUBITRIL\VALSARTAN
     Indication: CARDIAC FAILURE
     Dosage: UNK
     Route: 048

REACTIONS (6)
  - Productive cough [Unknown]
  - Immune system disorder [Unknown]
  - Leukaemia [Unknown]
  - Haemoglobin decreased [Unknown]
  - Chronic obstructive pulmonary disease [Unknown]
  - Pneumonia [Unknown]

NARRATIVE: CASE EVENT DATE: 202003
